FAERS Safety Report 4654094-9 (Version None)
Quarter: 2005Q2

REPORT INFORMATION
  Report Type: 
  Country: None (occurrence: None)
  Receive Date: 20050404
  Receipt Date: 20041216
  Transmission Date: 20051028
  Serious: No
  Sender: FDA-Public Use
  Company Number: USA041286426

PATIENT
  Sex: Male

DRUGS (4)
  1. CYMBALTA [Suspect]
     Indication: PAIN
     Dosage: 90 MG DAY
  2. VYTORIN [Concomitant]
  3. DURAGESIC (FENTANYL) [Concomitant]
  4. ACTIQ [Concomitant]

REACTIONS (4)
  - PRESCRIBED OVERDOSE [None]
  - PRURITUS [None]
  - RASH [None]
  - RETROGRADE EJACULATION [None]
